FAERS Safety Report 9303414 (Version 1)
Quarter: 2013Q2

REPORT INFORMATION
  Report Type: Report from Study
  Country: CA (occurrence: CA)
  Receive Date: 20130522
  Receipt Date: 20130522
  Transmission Date: 20140414
  Serious: Yes (Hospitalization)
  Sender: FDA-Public Use
  Company Number: CA-JNJFOC-20130511249

PATIENT
  Age: 42 Year
  Sex: Male
  Weight: 74.5 kg

DRUGS (1)
  1. REMICADE [Suspect]
     Indication: PSORIASIS
     Route: 042
     Dates: start: 20121218

REACTIONS (2)
  - Loss of consciousness [Unknown]
  - Tuberculosis [Unknown]
